FAERS Safety Report 9674790 (Version 1)
Quarter: 2013Q4

REPORT INFORMATION
  Report Type: Spontaneous
  Country: US (occurrence: US)
  Receive Date: 20131107
  Receipt Date: 20131107
  Transmission Date: 20140711
  Serious: No
  Sender: FDA-Public Use
  Company Number: US-BAYER-2013-135515

PATIENT
  Age: 30 Year
  Sex: Female
  Weight: 54 kg

DRUGS (3)
  1. ALEVE CAPLET [Suspect]
     Indication: TOOTHACHE
     Dosage: 1 DF, PRN
     Route: 048
  2. ORAJEL [Concomitant]
  3. LEVOTHYROXINE [Concomitant]

REACTIONS (1)
  - Drug ineffective [None]
